FAERS Safety Report 5391996-2 (Version None)
Quarter: 2007Q3

REPORT INFORMATION
  Report Type: 
  Country: None (occurrence: None)
  Receive Date: 20070720
  Receipt Date: 20070712
  Transmission Date: 20080115
  Serious: Yes (Death)
  Sender: FDA-Public Use
  Company Number: JP-SP-2007-02553

PATIENT
  Age: 85 Year
  Sex: Female

DRUGS (3)
  1. IMMUCYST [Suspect]
     Indication: BLADDER CANCER
     Route: 043
     Dates: start: 20060111, end: 20060322
  2. IMMUCYST [Suspect]
     Route: 043
     Dates: start: 20060111, end: 20060322
  3. LOXOPROFEN [Concomitant]
     Dates: start: 20060111, end: 20060322

REACTIONS (2)
  - DYSURIA [None]
  - METASTASIS [None]
